FAERS Safety Report 10728820 (Version 1)
Quarter: 2015Q1

REPORT INFORMATION
  Report Type: Spontaneous
  Country: US (occurrence: None)
  Receive Date: 20150120
  Receipt Date: 20150120
  Transmission Date: 20150721
  Serious: Yes (Disabling)
  Sender: FDA-Public Use
  Company Number: None

PATIENT
  Age: 52 Year
  Sex: Female
  Weight: 61.24 kg

DRUGS (2)
  1. VENLAFAXINE [Suspect]
     Active Substance: VENLAFAXINE HYDROCHLORIDE
     Indication: DEPRESSION
     Dosage: 1, AT BEDTIME
     Dates: start: 20131220, end: 20141230
  2. INVEGA [Suspect]
     Active Substance: PALIPERIDONE
     Indication: HALLUCINATION, AUDITORY
     Dosage: 1, ONCE DAILY
     Dates: start: 20130515, end: 20130730

REACTIONS (5)
  - Chest pain [None]
  - Ear pain [None]
  - Breast discomfort [None]
  - Pain in jaw [None]
  - Breast enlargement [None]

NARRATIVE: CASE EVENT DATE: 20140315
